FAERS Safety Report 5370524-1 (Version None)
Quarter: 2007Q2

REPORT INFORMATION
  Report Type: 
  Country: None (occurrence: None)
  Receive Date: 20070622
  Receipt Date: 20070606
  Transmission Date: 20071010
  Serious: Yes (Congenital Anomaly, Other)
  Sender: FDA-Public Use
  Company Number: 8024068

PATIENT
  Age: 2 Month
  Sex: Male
  Weight: 3.27 kg

DRUGS (2)
  1. KEPPRA [Suspect]
     Indication: GRAND MAL CONVULSION
     Dosage: 2500 MG/ /D TRP
     Route: 064
     Dates: start: 20060501
  2. LAMOTRIGINE [Suspect]
     Indication: GRAND MAL CONVULSION
     Dosage: 150 MG/D TRP
     Route: 064
     Dates: end: 20060501

REACTIONS (2)
  - DRUG EXPOSURE DURING PREGNANCY [None]
  - LIMB REDUCTION DEFECT [None]
